FAERS Safety Report 12481582 (Version 1)
Quarter: 2016Q2

REPORT INFORMATION
  Report Type: Spontaneous
  Country: GB (occurrence: GB)
  Receive Date: 20160620
  Receipt Date: 20160620
  Transmission Date: 20160815
  Serious: Yes (Congenital Anomaly)
  Sender: FDA-Public Use
  Company Number: PHHY2016GB080456

PATIENT
  Age: 5 Month
  Sex: Male

DRUGS (3)
  1. CHLORPROMAZINE. [Suspect]
     Active Substance: CHLORPROMAZINE
     Indication: PRODUCT USED FOR UNKNOWN INDICATION
     Dosage: 25 MG, AT CONCEPTION - 25MG TWICE A DAY. BY 12 WEEKS, REDUCE TO 25MG ONCE DAILY FOR 7 DAYS THEN STOP
     Route: 064
  2. QUETIAPINE. [Suspect]
     Active Substance: QUETIAPINE
     Indication: PRODUCT USED FOR UNKNOWN INDICATION
     Dosage: CONCEPTION: 750MG; 12 WEEKS: 150MG MANE 200MG NOCTE; 20 WEEKS: 200MG BD, 27-36 WEEKS: 300MG BD
     Route: 064
  3. MIRTAZAPINE. [Concomitant]
     Active Substance: MIRTAZAPINE
     Indication: PRODUCT USED FOR UNKNOWN INDICATION
     Dosage: 45 MG, QD, STATES THIS WAS DISCONTINUED BEFORE CONCEPTION.
     Route: 064

REACTIONS (2)
  - Congenital cerebrovascular anomaly [Unknown]
  - Neuroblastoma [Unknown]

NARRATIVE: CASE EVENT DATE: 20160218
